FAERS Safety Report 5442044-7 (Version None)
Quarter: 2007Q3

REPORT INFORMATION
  Report Type: 
  Country: None (occurrence: None)
  Receive Date: 20070904
  Receipt Date: 20070829
  Transmission Date: 20080115
  Serious: Yes (Death)
  Sender: FDA-Public Use
  Company Number: US-AVENTIS-200716183US

PATIENT
  Sex: Male

DRUGS (1)
  1. LOVENOX [Suspect]
     Indication: ANTICOAGULANT THERAPY
     Dosage: DOSE: UNK
     Dates: start: 20020101

REACTIONS (1)
  - DEATH [None]
